FAERS Safety Report 6461110-0 (Version None)
Quarter: 2009Q4

REPORT INFORMATION
  Report Type: 
  Country: None (occurrence: None)
  Receive Date: 20091130
  Receipt Date: 20091123
  Transmission Date: 20100525
  Serious: Yes (Hospitalization)
  Sender: FDA-Public Use
  Company Number: B0608842A

PATIENT
  Sex: Female

DRUGS (4)
  1. WELLBUTRIN [Suspect]
     Indication: DEPRESSION
     Dosage: 150MG PER DAY
     Route: 048
     Dates: start: 20031230, end: 20040130
  2. LITHIUM [Concomitant]
     Dates: start: 19940101
  3. DEPAKIN [Concomitant]
     Dates: start: 20010101
  4. ATIVAN [Concomitant]
     Dates: start: 20010101

REACTIONS (1)
  - BIPOLAR DISORDER [None]
